FAERS Safety Report 6284260-0 (Version None)
Quarter: 2009Q3

REPORT INFORMATION
  Report Type: 
  Country: None (occurrence: None)
  Receive Date: 20090722
  Receipt Date: 20090715
  Transmission Date: 20100115
  Serious: Yes (Death)
  Sender: FDA-Public Use
  Company Number: 200907AGG00884

PATIENT
  Age: 60 Year
  Sex: Male

DRUGS (4)
  1. TIROFIBAN        (TIROFIBAN HCL) [Suspect]
     Indication: ACUTE MYOCARDIAL INFARCTION
     Dates: start: 20090504, end: 20090504
  2. HEPARIN [Concomitant]
  3. ASPIRIN [Concomitant]
  4. CLOPIDOGREL BISULFATE [Concomitant]

REACTIONS (1)
  - HAEMORRHAGE INTRACRANIAL [None]
